FAERS Safety Report 7074977-2 (Version None)
Quarter: 2010Q4

REPORT INFORMATION
  Report Type: 
  Country: None (occurrence: None)
  Receive Date: 20101029
  Receipt Date: 20100226
  Transmission Date: 20110411
  Serious: No
  Sender: FDA-Public Use
  Company Number: US-WYE-H13821710

PATIENT
  Age: 56 Year
  Sex: Female
  Weight: 68.1 kg

DRUGS (2)
  1. ALAVERT [Suspect]
     Indication: HYPERSENSITIVITY
     Route: 048
     Dates: start: 20100201
  2. ARTHROTEC [Concomitant]

REACTIONS (1)
  - PALPITATIONS [None]
